FAERS Safety Report 20920127 (Version 1)
Quarter: 2022Q2

REPORT INFORMATION
  Report Type: Spontaneous
  Country: US (occurrence: US)
  Receive Date: 20220606
  Receipt Date: 20220606
  Transmission Date: 20220721
  Serious: No
  Sender: FDA-Public Use
  Company Number: US-TRIS PHARMA, INC.-22US010239

PATIENT

DRUGS (8)
  1. QUILLICHEW ER [Suspect]
     Active Substance: METHYLPHENIDATE HYDROCHLORIDE
     Indication: Attention deficit hyperactivity disorder
     Dosage: 80 MILLIGRAM, QD
     Route: 048
     Dates: start: 2021, end: 202112
  2. QUILLICHEW ER [Suspect]
     Active Substance: METHYLPHENIDATE HYDROCHLORIDE
     Dosage: 60 MILLIGRAM, QD
     Route: 048
     Dates: start: 2021, end: 2021
  3. QUILLICHEW ER [Suspect]
     Active Substance: METHYLPHENIDATE HYDROCHLORIDE
     Dosage: 30 MILLIGRAM, QD
     Route: 048
     Dates: start: 202102, end: 2021
  4. DEXMETHYLPHENIDATE [Concomitant]
     Active Substance: DEXMETHYLPHENIDATE
     Indication: Attention deficit hyperactivity disorder
     Dosage: UNK MILLIGRAM
  5. AZSTARYS [Concomitant]
     Active Substance: DEXMETHYLPHENIDATE HYDROCHLORIDE\SERDEXMETHYLPHENIDATE CHLORIDE
     Indication: Attention deficit hyperactivity disorder
  6. JORNAY PM EXTENDED-RELEASE [Concomitant]
     Active Substance: METHYLPHENIDATE HYDROCHLORIDE
     Indication: Attention deficit hyperactivity disorder
  7. RITALIN [Concomitant]
     Active Substance: METHYLPHENIDATE HYDROCHLORIDE
     Indication: Attention deficit hyperactivity disorder
  8. VYVANSE [Concomitant]
     Active Substance: LISDEXAMFETAMINE DIMESYLATE
     Indication: Attention deficit hyperactivity disorder

REACTIONS (3)
  - Off label use [Unknown]
  - Therapeutic response shortened [Unknown]
  - Drug ineffective [Unknown]

NARRATIVE: CASE EVENT DATE: 20210101
